FAERS Safety Report 19285112 (Version 2)
Quarter: 2021Q2

REPORT INFORMATION
  Report Type: Report from Study
  Country: US (occurrence: US)
  Receive Date: 20210521
  Receipt Date: 20210601
  Transmission Date: 20210717
  Serious: Yes (Other)
  Sender: FDA-Public Use
  Company Number: US-BAUSCH-BL-2021-017037

PATIENT
  Age: 24 Year
  Sex: Female

DRUGS (1)
  1. TRULANCE [Suspect]
     Active Substance: PLECANATIDE
     Indication: IRRITABLE BOWEL SYNDROME
     Route: 065
     Dates: start: 20180911, end: 20181130

REACTIONS (4)
  - Rectal haemorrhage [Unknown]
  - Large intestine polyp [Unknown]
  - Drug ineffective [Unknown]
  - Haemorrhoids [Unknown]
